FAERS Safety Report 11631975 (Version 2)
Quarter: 2015Q4

REPORT INFORMATION
  Report Type: Spontaneous
  Country: IT (occurrence: IT)
  Receive Date: 20151015
  Receipt Date: 20151023
  Transmission Date: 20160304
  Serious: Yes (Other)
  Sender: FDA-Public Use
  Company Number: IT-ACCORD-034338

PATIENT
  Age: 70 Year
  Sex: Female
  Weight: 56 kg

DRUGS (7)
  1. DEXAMETHASONE FOSFATO BIOLOGICI [Concomitant]
     Indication: PREMEDICATION
     Dosage: STRENGTH: 8MG/2ML
  2. PACLITAXEL ACCORD [Suspect]
     Active Substance: PACLITAXEL
     Indication: OVARIAN CANCER
     Dosage: UNDERWENT THE SECOND CHEMOTHERAPY CYCLE
     Route: 042
     Dates: start: 20150907, end: 20150929
  3. RANITIDINE [Concomitant]
     Active Substance: RANITIDINE\RANITIDINE HYDROCHLORIDE
     Indication: PREMEDICATION
     Dosage: STRENGTH: 50 MG/5ML
  4. ONDANSETRON BIOLOGICI [Concomitant]
     Indication: PROPHYLAXIS OF NAUSEA AND VOMITING
     Dosage: STRENGTH: 8 MG/4 ML
  5. SOLU MEDROL PFIZER [Concomitant]
     Indication: PREMEDICATION
     Dates: start: 20150928, end: 20150929
  6. TRIMETON BAYER [Concomitant]
     Dosage: STRENGTH; 10 MG/1 ML
  7. AVASTIN [Suspect]
     Active Substance: BEVACIZUMAB
     Indication: OVARIAN CANCER
     Dosage: AVASTIN 400 MG?UNDERWENT THE SECOND CHEMOTHERAPY CYCLE
     Route: 042
     Dates: start: 20150907

REACTIONS (3)
  - Hypertensive crisis [Recovered/Resolved]
  - Dyspnoea [Recovered/Resolved]
  - Rash [Recovered/Resolved]

NARRATIVE: CASE EVENT DATE: 20150929
